FAERS Safety Report 25464541 (Version 3)
Quarter: 2025Q3

REPORT INFORMATION
  Report Type: Report from Study
  Country: CA (occurrence: CA)
  Receive Date: 20250621
  Receipt Date: 20250721
  Transmission Date: 20251021
  Serious: Yes (Hospitalization, Other)
  Sender: TAKEDA
  Company Number: CA-TAKEDA-2025TUS055388

PATIENT
  Age: 83 Year
  Sex: Female

DRUGS (10)
  1. VEDOLIZUMAB [Suspect]
     Active Substance: VEDOLIZUMAB
     Indication: Colitis microscopic
  2. VEDOLIZUMAB [Suspect]
     Active Substance: VEDOLIZUMAB
     Dosage: 300 MILLIGRAM, Q4WEEKS
     Dates: start: 20250325
  3. PREDNISONE [Concomitant]
     Active Substance: PREDNISONE
  4. ATENOLOL [Concomitant]
     Active Substance: ATENOLOL
  5. LEFLUNOMIDE [Concomitant]
     Active Substance: LEFLUNOMIDE
  6. POTASSIUM [Concomitant]
     Active Substance: POTASSIUM
  7. TYLENOL [Concomitant]
     Active Substance: ACETAMINOPHEN
     Indication: Arthritis
  8. LOPERAMIDE [Concomitant]
     Active Substance: LOPERAMIDE
  9. VITAMIN D [Concomitant]
     Active Substance: VITAMIN D NOS
  10. ALENDRONATE [Concomitant]
     Active Substance: ALENDRONATE SODIUM

REACTIONS (5)
  - Hip fracture [Recovering/Resolving]
  - Fall [Recovering/Resolving]
  - Femur fracture [Recovering/Resolving]
  - Off label use [Unknown]
  - Product dose omission issue [Unknown]

NARRATIVE: CASE EVENT DATE: 20250325
